FAERS Safety Report 20606020 (Version 2)
Quarter: 2022Q2

REPORT INFORMATION
  Report Type: Spontaneous
  Country: PR (occurrence: PR)
  Receive Date: 20220317
  Receipt Date: 20220429
  Transmission Date: 20220721
  Serious: No
  Sender: FDA-Public Use
  Company Number: PR-PFIZER INC-202200285358

PATIENT
  Age: 17 Year
  Sex: Male
  Weight: 52.15 kg

DRUGS (1)
  1. GENOTROPIN [Suspect]
     Active Substance: SOMATROPIN
     Dosage: UNK
     Dates: start: 201912

REACTIONS (2)
  - Expired device used [Unknown]
  - Drug dose omission by device [Unknown]
